FAERS Safety Report 4599606-9 (Version None)
Quarter: 2005Q1

REPORT INFORMATION
  Report Type: 
  Country: None (occurrence: None)
  Receive Date: 20050303
  Receipt Date: 20050214
  Transmission Date: 20050727
  Serious: Yes (Hospitalization)
  Sender: FDA-Public Use
  Company Number: US_001255431

PATIENT
  Age: 44 Year
  Sex: Male
  Weight: 82 kg

DRUGS (3)
  1. ZYPREXA [Suspect]
     Indication: SCHIZOAFFECTIVE DISORDER
     Dosage: 15 MG DAY
     Dates: start: 19970101
  2. PAXIL [Concomitant]
  3. DEPAKOTE [Concomitant]

REACTIONS (10)
  - COGNITIVE DISORDER [None]
  - DELUSION [None]
  - DIARRHOEA [None]
  - DIZZINESS [None]
  - FEELING ABNORMAL [None]
  - GASTROOESOPHAGEAL REFLUX DISEASE [None]
  - PSYCHIATRIC SYMPTOM [None]
  - SMOKER [None]
  - VISION BLURRED [None]
  - VISUAL FIELD DEFECT [None]
